FAERS Safety Report 19845559 (Version 1)
Quarter: 2021Q3

REPORT INFORMATION
  Report Type: Spontaneous
  Country: US (occurrence: US)
  Receive Date: 20210917
  Receipt Date: 20210917
  Transmission Date: 20211014
  Serious: No
  Sender: FDA-Public Use
  Company Number: US-CADILA HEALTHCARE LIMITED-US-ZYDUS-064678

PATIENT
  Age: 74 Year
  Sex: Male

DRUGS (2)
  1. MESALAMINE 800 MILLIGRAM TABLET [Suspect]
     Active Substance: MESALAMINE
     Dosage: 800 MILLIGRAM, TID(TWO TABLETS)
     Route: 048
     Dates: start: 202103
  2. MESALAMINE 800 MILLIGRAM TABLET [Suspect]
     Active Substance: MESALAMINE
     Indication: COLITIS
     Dosage: 800 MILLIGRAM, BID(TWO TABLETS)
     Route: 048
     Dates: start: 2020, end: 202103

REACTIONS (1)
  - Product residue present [Not Recovered/Not Resolved]

NARRATIVE: CASE EVENT DATE: 202103
